FAERS Safety Report 16095779 (Version 1)
Quarter: 2019Q1

REPORT INFORMATION
  Report Type: Report from Study
  Country: CA (occurrence: CA)
  Receive Date: 20190320
  Receipt Date: 20190320
  Transmission Date: 20190418
  Serious: Yes (Other)
  Sender: FDA-Public Use
  Company Number: CA-JNJFOC-20190324910

PATIENT
  Age: 48 Year
  Sex: Female
  Weight: 51.9 kg

DRUGS (2)
  1. PURINETHOL [Concomitant]
     Active Substance: MERCAPTOPURINE
     Route: 065
  2. REMICADE [Suspect]
     Active Substance: INFLIXIMAB
     Indication: CROHN^S DISEASE
     Route: 042
     Dates: start: 20030521

REACTIONS (1)
  - Skin cancer [Unknown]

NARRATIVE: CASE EVENT DATE: 201902
